APPROVED DRUG PRODUCT: DAKLINZA
Active Ingredient: DACLATASVIR DIHYDROCHLORIDE
Strength: EQ 60MG BASE
Dosage Form/Route: TABLET;ORAL
Application: N206843 | Product #002
Applicant: BRISTOL-MYERS SQUIBB CO
Approved: Jul 24, 2015 | RLD: Yes | RS: No | Type: DISCN

PATENTS:
Patent 8900566 | Expires: Aug 8, 2027
Patent 8900566 | Expires: Aug 8, 2027
Patent 8642025 | Expires: Aug 11, 2027
Patent 9421192 | Expires: Aug 8, 2027
Patent 9421192 | Expires: Aug 8, 2027
Patent 8629171 | Expires: Jun 13, 2031
Patent 8642025 | Expires: Aug 11, 2027
Patent 8329159 | Expires: Jul 24, 2029